FAERS Safety Report 8902487 (Version 1)
Quarter: 2012Q4

REPORT INFORMATION
  Report Type: 
  Country: US (occurrence: US)
  Receive Date: 20121112
  Receipt Date: 20121112
  Transmission Date: 20130627
  Serious: Yes (Other)
  Sender: FDA-Public Use
  Company Number: US-ASTRAZENECA-2012SE84069

PATIENT
  Age: 18 Year

DRUGS (1)
  1. SEROQUEL [Suspect]
     Route: 048
     Dates: start: 20121026, end: 20121101

REACTIONS (2)
  - Suicidal ideation [Unknown]
  - Drug dose omission [Unknown]
